FAERS Safety Report 7209098-9 (Version None)
Quarter: 2011Q1

REPORT INFORMATION
  Report Type: 
  Country: None (occurrence: None)
  Receive Date: 20110104
  Receipt Date: 20101227
  Transmission Date: 20110831
  Serious: Yes (Hospitalization, Other)
  Sender: FDA-Public Use
  Company Number: BR-ABBOTT-10P-020-0694181-00

PATIENT
  Sex: Female
  Weight: 29 kg

DRUGS (4)
  1. DEPAKENE [Suspect]
     Dates: end: 20101213
  2. DEPAKENE [Suspect]
     Dates: start: 20101213
  3. DROSPIRENONE 3MG ; ETHINYLESTRADIOL 0.03MG (ELANI 28) (NON-ABBOTT) [Interacting]
     Indication: PREMENSTRUAL SYNDROME
     Route: 048
  4. DEPAKENE [Suspect]
     Indication: CONVULSION PROPHYLAXIS
     Route: 048
     Dates: start: 20030101

REACTIONS (6)
  - VOMITING [None]
  - WHITE BLOOD CELL COUNT ABNORMAL [None]
  - ANTICONVULSANT DRUG LEVEL ABNORMAL [None]
  - CONVULSION [None]
  - OVERGROWTH BACTERIAL [None]
  - PETIT MAL EPILEPSY [None]
